FAERS Safety Report 10047351 (Version 2)
Quarter: 2014Q2

REPORT INFORMATION
  Report Type: Spontaneous
  Country: IT (occurrence: None)
  Receive Date: 20140327
  Receipt Date: 20140410
  Transmission Date: 20141212
  Serious: Yes (Hospitalization)
  Sender: FDA-Public Use
  Company Number: AUR-APL-2014-03792

PATIENT
  Age: 64 Year
  Sex: Female

DRUGS (2)
  1. CEFTRIAXONE [Suspect]
     Indication: PRODUCT USED FOR UNKNOWN INDICATION
     Dosage: TOTAL
     Route: 042
     Dates: start: 20140225, end: 20140225
  2. CEFTRIAXONE [Suspect]
     Indication: ANTIBIOTIC PROPHYLAXIS
     Dosage: TOTAL
     Route: 042
     Dates: start: 20140225, end: 20140225

REACTIONS (3)
  - Angioedema [None]
  - Angioedema [None]
  - Urticaria [None]
